FAERS Safety Report 13955303 (Version 5)
Quarter: 2018Q4

REPORT INFORMATION
  Report Type: Spontaneous
  Country: DE (occurrence: DE)
  Receive Date: 20170911
  Receipt Date: 20181015
  Transmission Date: 20190204
  Serious: Yes (Death, Hospitalization, Other)
  Sender: FDA-Public Use
  Company Number: DE-JNJFOC-20170908361

PATIENT
  Age: 63 Year
  Sex: Female
  Weight: 62 kg

DRUGS (7)
  1. XARELTO [Suspect]
     Active Substance: RIVAROXABAN
     Indication: VENOUS THROMBOSIS
     Route: 048
     Dates: start: 20170713, end: 20170731
  2. PIROXICAM. [Concomitant]
     Active Substance: PIROXICAM
     Route: 065
     Dates: start: 2013, end: 2017
  3. MONO EMBOLEX [Concomitant]
     Active Substance: CERTOPARIN SODIUM
     Dates: start: 20170731
  4. PANTOPRAZOLE [Concomitant]
     Active Substance: PANTOPRAZOLE
     Route: 065
  5. VALSARTAN. [Concomitant]
     Active Substance: VALSARTAN
     Route: 065
  6. XARELTO [Suspect]
     Active Substance: RIVAROXABAN
     Indication: VENOUS THROMBOSIS
     Route: 048
     Dates: start: 20170622, end: 20170713
  7. DILTIAZEM. [Concomitant]
     Active Substance: DILTIAZEM
     Route: 065

REACTIONS (40)
  - Cardiac failure [Fatal]
  - Pericarditis [Unknown]
  - Chronic gastritis [Unknown]
  - Visual impairment [Unknown]
  - Leukopenia [Unknown]
  - General physical health deterioration [Unknown]
  - Headache [Unknown]
  - Thrombocytopenia [Unknown]
  - Arthralgia [Unknown]
  - Decreased appetite [Unknown]
  - Pyrexia [Unknown]
  - Lymphadenopathy [Unknown]
  - Hypokalaemia [Unknown]
  - Viral myocarditis [Unknown]
  - Hypochromic anaemia [Unknown]
  - Duodenal polyp [Unknown]
  - Reticulocyte count decreased [Unknown]
  - Hypocalcaemia [Unknown]
  - Retroperitoneal haemorrhage [Unknown]
  - Folate deficiency [Unknown]
  - Blood lactate dehydrogenase increased [Unknown]
  - Dizziness [Unknown]
  - Back pain [Unknown]
  - Glomerulosclerosis [Unknown]
  - Weight decreased [Unknown]
  - Malnutrition [Unknown]
  - Pancytopenia [Unknown]
  - Gastrointestinal inflammation [Unknown]
  - Aortic arteriosclerosis [Unknown]
  - Splenomegaly [Unknown]
  - Arrhythmogenic right ventricular dysplasia [Fatal]
  - Diarrhoea [Unknown]
  - Asthenia [Unknown]
  - Hyponatraemia [Unknown]
  - Circulatory collapse [Unknown]
  - Haemophagocytic lymphohistiocytosis [Unknown]
  - Blood pressure decreased [Unknown]
  - Serum ferritin increased [Unknown]
  - Apathy [Unknown]
  - Epistaxis [Unknown]

NARRATIVE: CASE EVENT DATE: 20170625
